FAERS Safety Report 7309723-8 (Version None)
Quarter: 2011Q1

REPORT INFORMATION
  Report Type: 
  Country: None (occurrence: None)
  Receive Date: 20110224
  Receipt Date: 20110214
  Transmission Date: 20110831
  Serious: Yes (Other)
  Sender: FDA-Public Use
  Company Number: US-BIOGENIDEC-2011BI002877

PATIENT
  Sex: Male
  Weight: 54 kg

DRUGS (11)
  1. ULTRAM [Concomitant]
     Route: 048
  2. VICODIN ES [Concomitant]
     Route: 048
  3. AVONEX [Suspect]
     Indication: RELAPSING-REMITTING MULTIPLE SCLEROSIS
     Route: 030
     Dates: start: 20110101
  4. LEXAPRO [Concomitant]
  5. AVONEX [Suspect]
     Route: 030
     Dates: start: 20020825, end: 20060403
  6. RESTORIL [Concomitant]
     Route: 048
  7. BACLOFEN [Concomitant]
     Route: 048
  8. PAROXETINE HCL [Concomitant]
     Route: 048
  9. CHANTIX [Concomitant]
  10. CHANTIX [Concomitant]
  11. XANAX [Concomitant]
     Route: 048

REACTIONS (2)
  - GRAND MAL CONVULSION [None]
  - SCAR [None]
